FAERS Safety Report 21758691 (Version 1)
Quarter: 2022Q4

REPORT INFORMATION
  Report Type: Spontaneous
  Country: HR (occurrence: HR)
  Receive Date: 20221221
  Receipt Date: 20221221
  Transmission Date: 20230113
  Serious: Yes (Hospitalization, Other)
  Sender: FDA-Public Use
  Company Number: HR-009507513-2104HRV003170

PATIENT
  Age: 66 Year
  Sex: Male

DRUGS (6)
  1. PEMETREXED DISODIUM [Suspect]
     Active Substance: PEMETREXED DISODIUM
     Indication: Lung adenocarcinoma
     Dosage: 1000 MG INTRAVENOUS; THERAPY END DATE : NASK
     Route: 042
     Dates: start: 20210308
  2. PEMETREXED DISODIUM [Suspect]
     Active Substance: PEMETREXED DISODIUM
     Dosage: 1000 MILLIGRAM
     Dates: start: 2020, end: 20210119
  3. CISPLATIN [Suspect]
     Active Substance: CISPLATIN
     Indication: Lung adenocarcinoma
     Dosage: 150 MG
     Dates: start: 2020, end: 2020
  4. CISPLATIN [Suspect]
     Active Substance: CISPLATIN
     Dosage: 130 MG
     Dates: start: 2020, end: 20201119
  5. KEYTRUDA [Suspect]
     Active Substance: PEMBROLIZUMAB
     Indication: Lung adenocarcinoma
     Dosage: 200 MG; THERAPY END DATE : NASK
     Dates: start: 20200728
  6. KEYTRUDA [Suspect]
     Active Substance: PEMBROLIZUMAB
     Dosage: 200 MG INTRAVENOUS; THERAPY END DATE : NASK
     Route: 042
     Dates: start: 20210308

REACTIONS (17)
  - Platelet count decreased [Unknown]
  - Lymphocyte count increased [Unknown]
  - Leukopenia [Unknown]
  - Mean cell haemoglobin increased [Unknown]
  - Macrocytosis [Unknown]
  - Haematocrit decreased [Unknown]
  - Malignant neoplasm progression [Unknown]
  - Basophil count increased [Unknown]
  - Haemoglobin decreased [Unknown]
  - Off label use [Unknown]
  - Neutropenia [Unknown]
  - Mean cell haemoglobin concentration increased [Unknown]
  - Pulmonary embolism [Unknown]
  - Monocyte count decreased [Unknown]
  - Dyspnoea exertional [Unknown]
  - Eosinophil count increased [Unknown]
  - Red blood cell count decreased [Unknown]

NARRATIVE: CASE EVENT DATE: 20200101
